FAERS Safety Report 10680138 (Version 1)
Quarter: 2014Q4

REPORT INFORMATION
  Report Type: Spontaneous
  Country: FR (occurrence: FR)
  Receive Date: 20141229
  Receipt Date: 20141229
  Transmission Date: 20150529
  Serious: Yes (Hospitalization)
  Sender: FDA-Public Use
  Company Number: FR-PFIZER INC-2014355256

PATIENT
  Age: 62 Year
  Sex: Female
  Weight: 65 kg

DRUGS (9)
  1. TAZOCILLINE [Suspect]
     Active Substance: PIPERACILLIN SODIUM\TAZOBACTAM SODIUM
     Dosage: 3 G, 4X/DAY
     Route: 042
     Dates: start: 20141103, end: 20141117
  2. EFFEXOR LP [Suspect]
     Active Substance: VENLAFAXINE HYDROCHLORIDE
     Dosage: 75 MG, 1X/DAY
     Route: 048
     Dates: start: 20141113, end: 20141117
  3. CONTRAMAL [Suspect]
     Active Substance: TRAMADOL HYDROCHLORIDE
     Dosage: 50 MG, 4X/DAY
     Route: 048
     Dates: start: 201410, end: 20141117
  4. MICROLAX [Concomitant]
  5. FLUCONAZOLE. [Concomitant]
     Active Substance: FLUCONAZOLE
  6. INIPOMP [Concomitant]
     Active Substance: PANTOPRAZOLE SODIUM
  7. CIFLOX [Concomitant]
     Active Substance: CIPROFLOXACIN
     Dosage: UNK
     Dates: start: 20141103, end: 20141117
  8. FOLIC ACID. [Concomitant]
     Active Substance: FOLIC ACID
  9. INNOHEP [Concomitant]
     Active Substance: TINZAPARIN SODIUM

REACTIONS (2)
  - Coma [Recovered/Resolved]
  - Encephalopathy [Recovered/Resolved]

NARRATIVE: CASE EVENT DATE: 20141116
